FAERS Safety Report 5488630-X (Version None)
Quarter: 2007Q4

REPORT INFORMATION
  Report Type: 
  Country: None (occurrence: None)
  Receive Date: 20071016
  Receipt Date: 20071001
  Transmission Date: 20080405
  Serious: Yes (Other)
  Sender: FDA-Public Use
  Company Number: 2007001840

PATIENT
  Age: 70 Year
  Sex: Female

DRUGS (3)
  1. TARCEVA [Suspect]
     Indication: NON-SMALL CELL LUNG CANCER
     Dosage: ORAL
     Route: 048
     Dates: start: 20070712
  2. DIAZEPAM [Concomitant]
  3. BASEN (VOGLIBOSE) [Concomitant]

REACTIONS (5)
  - BLOOD GLUCOSE DECREASED [None]
  - COMA [None]
  - DIARRHOEA [None]
  - DRY MOUTH [None]
  - LIP DISCOLOURATION [None]
